FAERS Safety Report 20585894 (Version 3)
Quarter: 2022Q2

REPORT INFORMATION
  Report Type: Report from Study
  Country: GT (occurrence: GT)
  Receive Date: 20220312
  Receipt Date: 20220412
  Transmission Date: 20220721
  Serious: Yes (Other)
  Sender: FDA-Public Use
  Company Number: GT-NOVARTISPH-NVSC2022GT056961

PATIENT
  Sex: Female
  Weight: 67.12 kg

DRUGS (4)
  1. EXFORGE [Suspect]
     Active Substance: AMLODIPINE BESYLATE\VALSARTAN
     Indication: Hypertension
     Dosage: 1 DOSAGE FORM, QD
     Route: 065
     Dates: start: 2019, end: 202108
  2. EXFORGE [Suspect]
     Active Substance: AMLODIPINE BESYLATE\VALSARTAN
     Dosage: 1 DOSAGE FORM
     Route: 065
     Dates: end: 202201
  3. DIOVAN [Suspect]
     Active Substance: VALSARTAN
     Indication: Hypertension
     Dosage: 320 MG, QD (19 YEARS AGO)
     Route: 065
     Dates: end: 2019
  4. DIOVAN [Suspect]
     Active Substance: VALSARTAN
     Dosage: 320 MG, QD
     Route: 065
     Dates: start: 202108

REACTIONS (6)
  - Cardiac dysfunction [Unknown]
  - Cerebrovascular accident [Unknown]
  - Peripheral swelling [Not Recovered/Not Resolved]
  - Aphasia [Unknown]
  - Feeling abnormal [Unknown]
  - Joint swelling [Not Recovered/Not Resolved]

NARRATIVE: CASE EVENT DATE: 20190101
